FAERS Safety Report 5629850-0 (Version None)
Quarter: 2008Q1

REPORT INFORMATION
  Report Type: 
  Country: None (occurrence: None)
  Receive Date: 20080218
  Receipt Date: 20080213
  Transmission Date: 20080703
  Serious: Yes (Hospitalization, Other)
  Sender: FDA-Public Use
  Company Number: US-ASTRAZENECA-2008UW02082

PATIENT
  Age: 54 Year
  Sex: Female
  Weight: 68.2 kg

DRUGS (3)
  1. SEROQUEL [Suspect]
     Indication: BIPOLAR I DISORDER
     Route: 048
  2. LEVOTHYROXINE SODIUM [Concomitant]
     Dates: start: 20070601
  3. ARICEPT [Concomitant]
     Dates: start: 20071007, end: 20080130

REACTIONS (2)
  - INTESTINAL INFARCTION [None]
  - RECTAL HAEMORRHAGE [None]
